FAERS Safety Report 6475619-7 (Version None)
Quarter: 2009Q4

REPORT INFORMATION
  Report Type: 
  Country: None (occurrence: None)
  Receive Date: 20091204
  Receipt Date: 20090630
  Transmission Date: 20100525
  Serious: No
  Sender: FDA-Public Use
  Company Number: US-AMGEN-KDL326680

PATIENT
  Sex: Male

DRUGS (9)
  1. ENBREL [Suspect]
     Indication: ANKYLOSING SPONDYLITIS
     Route: 058
     Dates: start: 19980101
  2. METHOTREXATE [Concomitant]
     Route: 048
     Dates: start: 19981130
  3. PLAQUENIL [Concomitant]
     Route: 048
     Dates: start: 19991123
  4. CELEBREX [Concomitant]
     Dates: start: 19990906
  5. DARVOCET-N 100 [Concomitant]
     Dates: start: 19990303
  6. FOLIC ACID [Concomitant]
     Dates: start: 20061010
  7. OMEPRAZOLE [Concomitant]
     Dates: start: 20080110
  8. PREDNISONE [Concomitant]
     Dates: start: 19981120
  9. TRAZODONE [Concomitant]
     Dates: start: 20020108

REACTIONS (4)
  - INFECTED BITES [None]
  - KNEE OPERATION [None]
  - RHEUMATOID ARTHRITIS [None]
  - UMBILICAL HERNIA [None]
